FAERS Safety Report 13603007 (Version 1)
Quarter: 2017Q2

REPORT INFORMATION
  Report Type: Spontaneous
  Country: PE (occurrence: PE)
  Receive Date: 20170601
  Receipt Date: 20170601
  Transmission Date: 20170830
  Serious: Yes (Other)
  Sender: FDA-Public Use
  Company Number: PHHY2017PE048624

PATIENT
  Age: 32 Year
  Sex: Female

DRUGS (2)
  1. THYROXINE [Concomitant]
     Active Substance: LEVOTHYROXINE
     Indication: THYROID HORMONES DECREASED
     Dosage: 1 DF, QD
     Route: 048
  2. SIGNIFOR [Suspect]
     Active Substance: PASIREOTIDE
     Indication: CUSHING^S SYNDROME
     Route: 058
     Dates: start: 2015, end: 201703

REACTIONS (4)
  - Maternal exposure during pregnancy [Unknown]
  - Headache [Recovered/Resolved]
  - Nausea [Unknown]
  - Abortion spontaneous [Unknown]
